FAERS Safety Report 5463593-1 (Version None)
Quarter: 2007Q3

REPORT INFORMATION
  Report Type: 
  Country: None (occurrence: None)
  Receive Date: 20070920
  Receipt Date: 20070918
  Transmission Date: 20080115
  Serious: Yes (Hospitalization)
  Sender: FDA-Public Use
  Company Number: TR-ROXANE LABORATORIES, INC-2007-DE-05581GD

PATIENT
  Age: 66 Year

DRUGS (4)
  1. MORPHINE SULFATE [Suspect]
     Indication: NEURALGIA
     Route: 048
  2. MORPHINE SULFATE [Suspect]
     Indication: CANCER PAIN
  3. GABAPENTIN [Suspect]
     Indication: NEURALGIA
  4. GABAPENTIN [Suspect]
     Indication: CANCER PAIN

REACTIONS (2)
  - DRUG INTERACTION [None]
  - RESPIRATORY DEPRESSION [None]
